FAERS Safety Report 7207451-0 (Version None)
Quarter: 2011Q1

REPORT INFORMATION
  Report Type: 
  Country: None (occurrence: None)
  Receive Date: 20110103
  Receipt Date: 20101227
  Transmission Date: 20110831
  Serious: Yes (Life-Threatening, Other)
  Sender: FDA-Public Use
  Company Number: PHHY2010CH87708

PATIENT
  Age: 32 Year
  Sex: Male
  Weight: 73 kg

DRUGS (9)
  1. CLOPIN ECO [Suspect]
     Dosage: 75 MG/ DAY
     Route: 048
     Dates: start: 20101129, end: 20101201
  2. SEROQUEL [Concomitant]
     Dosage: 100 MG, BID
     Route: 048
     Dates: start: 20101216
  3. CLOPIN ECO [Suspect]
     Dosage: 150 MG/ DAY
     Route: 048
     Dates: start: 20101206, end: 20101208
  4. CLOPIN ECO [Suspect]
     Indication: SCHIZOPHRENIA
     Dosage: 25 MG/DAY
     Route: 048
     Dates: start: 20101117, end: 20101216
  5. RISPERDAL [Concomitant]
     Dosage: UNK
     Route: 048
     Dates: start: 20101101, end: 20101101
  6. CLOPIN ECO [Suspect]
     Dosage: 100 MG/ DAY
     Route: 048
     Dates: start: 20101202, end: 20101205
  7. CLOPIN ECO [Suspect]
     Dosage: 50 MG/ DAY
     Route: 048
     Dates: start: 20101118, end: 20101128
  8. CLOPIN ECO [Suspect]
     Dosage: 200 MG/ DAY
     Dates: start: 20101209, end: 20101216
  9. AMITRIPTYLINE HCL [Concomitant]
     Dosage: 150 MG, QD
     Route: 048
     Dates: start: 20101216

REACTIONS (20)
  - MYOPERICARDITIS [None]
  - EJECTION FRACTION DECREASED [None]
  - LUNG DISORDER [None]
  - CAROTID ARTERY THROMBOSIS [None]
  - MALAISE [None]
  - TROPONIN INCREASED [None]
  - MYOCARDITIS [None]
  - EMBOLIC STROKE [None]
  - HEMIPLEGIA [None]
  - CHEST PAIN [None]
  - DYSPNOEA [None]
  - C-REACTIVE PROTEIN INCREASED [None]
  - ELECTROCARDIOGRAM ABNORMAL [None]
  - CARDIOMEGALY [None]
  - PERICARDIAL EFFUSION [None]
  - COMA SCALE ABNORMAL [None]
  - FATIGUE [None]
  - INTRACARDIAC THROMBUS [None]
  - CEREBRAL INFARCTION [None]
  - APHASIA [None]
